FAERS Safety Report 11561059 (Version 1)
Quarter: 2015Q3

REPORT INFORMATION
  Report Type: Spontaneous
  Country: US (occurrence: US)
  Receive Date: 20150928
  Receipt Date: 20150928
  Transmission Date: 20151125
  Serious: No
  Sender: FDA-Public Use
  Company Number: US-SHIRE-US201511943

PATIENT
  Age: 7 Year
  Sex: Female
  Weight: 23.58 kg

DRUGS (7)
  1. VYVANSE [Suspect]
     Active Substance: LISDEXAMFETAMINE DIMESYLATE
     Dosage: 10 MG, 1X/DAY:QD (IN THE MORNING)
     Route: 048
     Dates: start: 20150904
  2. MAGNESIUM [Concomitant]
     Active Substance: MAGNESIUM
     Indication: DISTURBANCE IN ATTENTION
     Dosage: UNK, UNKNOWN (NON CONSISTENT BASIS)
     Route: 048
  3. ZINC [Concomitant]
     Active Substance: ZINC\ZINC CHLORIDE
     Indication: DISTURBANCE IN ATTENTION
     Dosage: UNK, UNKNOWN (NON CONSISTENT BASIS)
     Route: 048
  4. VYVANSE [Suspect]
     Active Substance: LISDEXAMFETAMINE DIMESYLATE
     Indication: ATTENTION DEFICIT/HYPERACTIVITY DISORDER
     Dosage: 20 MG, UNKNOWN
     Route: 048
     Dates: start: 201503, end: 201503
  5. INTUNIV [Suspect]
     Active Substance: GUANFACINE HYDROCHLORIDE
     Indication: IMPULSIVE BEHAVIOUR
     Dosage: 2 MG, UNKNOWN
     Route: 048
     Dates: start: 201408, end: 201408
  6. OMEGA 3                            /01334101/ [Concomitant]
     Active Substance: OMEGA-3 FATTY ACIDS
     Indication: SLEEP DISORDER
     Dosage: 1 DF (1 TEASPOON), 1X/DAY:QD (NIGHTLY)
     Route: 048
     Dates: start: 201408
  7. INTUNIV [Suspect]
     Active Substance: GUANFACINE HYDROCHLORIDE
     Indication: ATTENTION DEFICIT/HYPERACTIVITY DISORDER
     Dosage: 1 MG, UNKNOWN
     Route: 048
     Dates: start: 201408

REACTIONS (8)
  - Adverse drug reaction [Unknown]
  - Food aversion [Unknown]
  - Abdominal pain upper [Unknown]
  - Nervousness [Unknown]
  - Decreased appetite [Unknown]
  - Feeling jittery [Recovered/Resolved]
  - Oral administration complication [Unknown]
  - Irritability [Unknown]

NARRATIVE: CASE EVENT DATE: 201503
